FAERS Safety Report 16797682 (Version 6)
Quarter: 2020Q1

REPORT INFORMATION
  Report Type: Spontaneous
  Country: PT (occurrence: PT)
  Receive Date: 20190912
  Receipt Date: 20200302
  Transmission Date: 20200409
  Serious: Yes (Other)
  Sender: FDA-Public Use
  Company Number: PT-AUROBINDO-AUR-APL-2019-059097

PATIENT
  Sex: Female

DRUGS (14)
  1. ADALIMUMAB [Suspect]
     Active Substance: ADALIMUMAB
     Indication: PSORIASIS
  2. RONIC [Suspect]
     Active Substance: DEXAMETHASONE SODIUM PHOSPHATE
     Indication: PRODUCT USED FOR UNKNOWN INDICATION
     Dosage: UNK, TWICE DAILY EACH, IN BOTH EYES
     Route: 061
  3. TIMOLOL. [Suspect]
     Active Substance: TIMOLOL
     Indication: INTRAOCULAR PRESSURE INCREASED
     Dosage: 5 MILLIGRAM PER MILLILITRE (TWICE DAILY EACH, IN BOTH EYES)
     Route: 061
  4. LATANOPROST 50?G/ML [Suspect]
     Active Substance: LATANOPROST
     Indication: GLAUCOMA
     Dosage: 0.5 MILLIGRAM PER MILLILITRE
     Route: 061
     Dates: start: 2014
  5. METHOTREXATE. [Suspect]
     Active Substance: METHOTREXATE
     Dosage: UNK
     Route: 058
  6. CARBINIB [Suspect]
     Active Substance: ACETAZOLAMIDE
     Dosage: 250 MILLIGRAM
     Route: 048
     Dates: start: 2014
  7. METHOTREXATE. [Suspect]
     Active Substance: METHOTREXATE
     Indication: JUVENILE IDIOPATHIC ARTHRITIS
     Dosage: 15 MILLIGRAM/SQ. METER, EVERY WEEK
     Route: 048
     Dates: start: 2011
  8. TOCILIZUMAB. [Concomitant]
     Active Substance: TOCILIZUMAB
     Indication: PRODUCT USED FOR UNKNOWN INDICATION
     Dosage: 12 MILLIGRAM/KILOGRAM, EVERY TWO WEEKS
     Route: 042
  9. BRIMONIDINE [Suspect]
     Active Substance: BRIMONIDINE TARTRATE
     Indication: INTRAOCULAR PRESSURE TEST
     Dosage: 2 MILLIGRAM PER MILLILITRE
     Route: 061
  10. ADALIMUMAB [Suspect]
     Active Substance: ADALIMUMAB
     Indication: JUVENILE IDIOPATHIC ARTHRITIS
     Dosage: 24 MILLIGRAM/SQ. METER,EVERY 2 WEEK
     Route: 058
     Dates: start: 2014
  11. CARBINIB [Suspect]
     Active Substance: ACETAZOLAMIDE
     Indication: GLAUCOMA
     Dosage: 250 MILLIGRAM, ONCE A DAY
     Route: 048
     Dates: start: 2014
  12. DEFLAZACORTE [Suspect]
     Active Substance: DEFLAZACORT
     Indication: JUVENILE IDIOPATHIC ARTHRITIS
     Dosage: 0.5 MILLIGRAM/KILOGRAM, ONCE A DAY
     Route: 048
     Dates: start: 2011
  13. IBUPROFEN. [Suspect]
     Active Substance: IBUPROFEN
     Indication: JUVENILE IDIOPATHIC ARTHRITIS
     Dosage: 30 MILLIGRAM/KILOGRAM, ONCE A DAY
     Route: 048
     Dates: start: 2010
  14. BRINZOLAMIDE [Suspect]
     Active Substance: BRINZOLAMIDE
     Indication: INTRAOCULAR PRESSURE TEST
     Dosage: 10 MILLIGRAM PER MILLILITRE
     Route: 061

REACTIONS (4)
  - Cushing^s syndrome [Unknown]
  - Drug ineffective [Unknown]
  - Muscle atrophy [Unknown]
  - Body height below normal [Unknown]
